FAERS Safety Report 6669098-4 (Version None)
Quarter: 2010Q2

REPORT INFORMATION
  Report Type: 
  Country: None (occurrence: None)
  Receive Date: 20100406
  Receipt Date: 20100329
  Transmission Date: 20101027
  Serious: Yes (Other)
  Sender: FDA-Public Use
  Company Number: DE-SANOFI-AVENTIS-2010SA017795

PATIENT
  Sex: Male
  Weight: 88 kg

DRUGS (1)
  1. MULTAQ [Suspect]
     Dosage: DAILY DOSE: 800 MG MILLIGRAM(S) EVERY DAY
     Route: 048
     Dates: start: 20100218, end: 20100225

REACTIONS (3)
  - ANGINA PECTORIS [None]
  - NAUSEA [None]
  - RASH [None]
